FAERS Safety Report 8478598-6 (Version None)
Quarter: 2012Q2

REPORT INFORMATION
  Report Type: 
  Country: None (occurrence: None)
  Receive Date: 20120629
  Receipt Date: 20120628
  Transmission Date: 20120825
  Serious: Yes (Death, Other)
  Sender: FDA-Public Use
  Company Number: PHHY2011SE63056

PATIENT
  Age: 27 Year
  Sex: Male

DRUGS (6)
  1. MIRTAZAPINE [Suspect]
  2. BUPRENORPHINE [Suspect]
  3. HERBAL BLEND KRYPTON [Suspect]
  4. VENLAFAXINE [Suspect]
  5. TRIMEPRAZINE TAB [Suspect]
  6. DIAZEPAM [Suspect]
     Dosage: UNK

REACTIONS (3)
  - TOXICITY TO VARIOUS AGENTS [None]
  - BRAIN OEDEMA [None]
  - PULMONARY OEDEMA [None]
